FAERS Safety Report 8614916-3 (Version None)
Quarter: 2012Q3

REPORT INFORMATION
  Report Type: 
  Country: None (occurrence: None)
  Receive Date: 20120814
  Receipt Date: 20120814
  Transmission Date: 20120928
  Serious: Yes (Other)
  Sender: FDA-Public Use
  Company Number: None

PATIENT
  Sex: Female
  Weight: 71.4 kg

DRUGS (1)
  1. TUBERSOL [Suspect]
     Indication: TUBERCULOSIS
     Dosage: INTRADERMAL,ONGOING DAILY FOR YEARS

REACTIONS (1)
  - ALLERGY TO VACCINE [None]
